FAERS Safety Report 7806440-2 (Version None)
Quarter: 2011Q4

REPORT INFORMATION
  Report Type: 
  Country: None (occurrence: None)
  Receive Date: 20111011
  Receipt Date: 20110926
  Transmission Date: 20120403
  Serious: Yes (Other)
  Sender: FDA-Public Use
  Company Number: DE-CTI_01384_2011

PATIENT
  Sex: Female

DRUGS (3)
  1. CUROSURF [Suspect]
     Indication: DYSPNOEA
     Dosage: (SINGLE ADMINISTRATION)
     Route: 007
     Dates: start: 20110715, end: 20110715
  2. CEFOTAXIME [Concomitant]
     Dosage: DF
     Dates: start: 20110715
  3. AMPICILLIN SODIUM [Concomitant]
     Dosage: DF
     Dates: start: 20110715

REACTIONS (1)
  - C-REACTIVE PROTEIN INCREASED [None]
